FAERS Safety Report 13634352 (Version 1)
Quarter: 2017Q2

REPORT INFORMATION
  Report Type: Spontaneous
  Country: US (occurrence: US)
  Receive Date: 20170531
  Receipt Date: 20170531
  Transmission Date: 20170830
  Serious: No
  Sender: FDA-Public Use
  Company Number: US-ASTELLAS-1622635

PATIENT
  Age: 63 Year
  Sex: Female
  Weight: 89.44 kg

DRUGS (8)
  1. METHOCARBAMOL. [Concomitant]
     Active Substance: METHOCARBAMOL
  2. TARCEVA [Suspect]
     Active Substance: ERLOTINIB HYDROCHLORIDE
     Route: 048
     Dates: start: 20150823
  3. OXYCONTIN [Concomitant]
     Active Substance: OXYCODONE HYDROCHLORIDE
  4. ARMOUR THYROID [Concomitant]
     Active Substance: THYROID, PORCINE
  5. TARCEVA [Suspect]
     Active Substance: ERLOTINIB HYDROCHLORIDE
     Indication: NON-SMALL CELL LUNG CANCER
     Route: 048
     Dates: start: 20150812
  6. LEXAPRO [Concomitant]
     Active Substance: ESCITALOPRAM OXALATE
  7. DIAZEPAM. [Concomitant]
     Active Substance: DIAZEPAM
  8. FAMOTIDINE. [Concomitant]
     Active Substance: FAMOTIDINE

REACTIONS (15)
  - Anxiety [Unknown]
  - Dry skin [Unknown]
  - Fatigue [Unknown]
  - Rosacea [Unknown]
  - Diarrhoea [Unknown]
  - Vomiting [Unknown]
  - Nausea [Unknown]
  - Hot flush [Unknown]
  - Dyspepsia [Unknown]
  - Diarrhoea [Recovering/Resolving]
  - Eczema [Unknown]
  - Constipation [Unknown]
  - Pruritus [Unknown]
  - Dyspnoea [Unknown]
  - Alopecia [Unknown]

NARRATIVE: CASE EVENT DATE: 20151202
